FAERS Safety Report 6268508-4 (Version None)
Quarter: 2009Q3

REPORT INFORMATION
  Report Type: 
  Country: None (occurrence: None)
  Receive Date: 20090709
  Receipt Date: 20090113
  Transmission Date: 20100115
  Serious: Yes (Hospitalization)
  Sender: FDA-Public Use
  Company Number: CIP09000093

PATIENT
  Age: 83 Year
  Sex: Female
  Weight: 38.5 kg

DRUGS (2)
  1. MACRODANTIN [Suspect]
     Dosage: 100 MG TWICE DAILY, ORAL
     Route: 048
     Dates: start: 19890101
  2. ALL OTHER THERAPEUTIC PRODUCTS [Concomitant]

REACTIONS (6)
  - COUGH [None]
  - DECREASED APPETITE [None]
  - GENERAL PHYSICAL HEALTH DETERIORATION [None]
  - PNEUMONIA [None]
  - PULMONARY FIBROSIS [None]
  - WEIGHT DECREASED [None]
